FAERS Safety Report 13469243 (Version 2)
Quarter: 2017Q2

REPORT INFORMATION
  Report Type: Spontaneous
  Country: US (occurrence: US)
  Receive Date: 20170421
  Receipt Date: 20170505
  Transmission Date: 20170830
  Serious: Yes (Hospitalization, Other)
  Sender: FDA-Public Use
  Company Number: US-BRISTOL-MYERS SQUIBB COMPANY-BMS-2017-032867

PATIENT
  Age: 56 Year
  Sex: Female

DRUGS (2)
  1. LOVENOX [Concomitant]
     Active Substance: ENOXAPARIN SODIUM
     Indication: PRODUCT USED FOR UNKNOWN INDICATION
     Route: 065
  2. COUMADIN [Suspect]
     Active Substance: WARFARIN SODIUM
     Indication: ANTIPHOSPHOLIPID SYNDROME
     Dosage: 23 MG, UNK
     Route: 065
     Dates: start: 200701, end: 201610

REACTIONS (11)
  - Systemic lupus erythematosus [Unknown]
  - Cerebral haemorrhage [Unknown]
  - Cerebrovascular accident [Recovering/Resolving]
  - Multiple sclerosis [Unknown]
  - Diverticulitis [Unknown]
  - International normalised ratio abnormal [Unknown]
  - Product use in unapproved indication [Unknown]
  - Polymyositis [Unknown]
  - Pleurisy [Unknown]
  - Chest pain [Unknown]
  - Transfusion [Unknown]

NARRATIVE: CASE EVENT DATE: 201602
